FAERS Safety Report 25405008 (Version 1)
Quarter: 2025Q2

REPORT INFORMATION
  Report Type: Spontaneous
  Country: US (occurrence: US)
  Receive Date: 20250606
  Receipt Date: 20250606
  Transmission Date: 20250717
  Serious: Yes (Other)
  Sender: RANBAXY
  Company Number: US-SUN PHARMACEUTICAL INDUSTRIES LTD-2025R1-509797

PATIENT
  Age: 87 Year
  Sex: Male

DRUGS (4)
  1. ATROPINE\DIPHENOXYLATE [Suspect]
     Active Substance: ATROPINE\DIPHENOXYLATE
     Indication: Small intestinal anastomosis
     Route: 065
  2. LOPERAMIDE [Suspect]
     Active Substance: LOPERAMIDE
     Indication: Small intestinal anastomosis
     Route: 065
  3. CHOLESTYRAMINE [Suspect]
     Active Substance: CHOLESTYRAMINE
     Indication: Small intestinal anastomosis
     Route: 065
  4. OPIUM [Suspect]
     Active Substance: OPIUM
     Indication: Small intestinal anastomosis
     Route: 065

REACTIONS (2)
  - Therapy non-responder [Unknown]
  - Weight decreased [Unknown]
